FAERS Safety Report 23249226 (Version 1)
Quarter: 2023Q4

REPORT INFORMATION
  Report Type: Report from Study
  Country: FR (occurrence: FR)
  Receive Date: 20231201
  Receipt Date: 20231201
  Transmission Date: 20240109
  Serious: Yes (Hospitalization)
  Sender: FDA-Public Use
  Company Number: FR-002147023-NVSC2023FR252635

PATIENT
  Sex: Male
  Weight: 69 kg

DRUGS (2)
  1. PLUVICTO [Suspect]
     Active Substance: LUTETIUM LU-177 VIPIVOTIDE TETRAXETAN
     Indication: Prostate cancer
     Dosage: 7160 MBQ, ONCE/SINGLE
     Route: 065
     Dates: start: 20230921, end: 20230921
  2. PLUVICTO [Suspect]
     Active Substance: LUTETIUM LU-177 VIPIVOTIDE TETRAXETAN
     Dosage: UNK UNK, ONCE/SINGLE
     Route: 065
     Dates: start: 20231102, end: 20231102

REACTIONS (1)
  - Infection [Unknown]
